FAERS Safety Report 7591221-8 (Version None)
Quarter: 2011Q3

REPORT INFORMATION
  Report Type: 
  Country: None (occurrence: None)
  Receive Date: 20110706
  Receipt Date: 20110627
  Transmission Date: 20111222
  Serious: Yes (Other)
  Sender: FDA-Public Use
  Company Number: DE-BIOGENIDEC-2011BI023386

PATIENT
  Age: 27 Year
  Sex: Female
  Weight: 76 kg

DRUGS (2)
  1. TYSABRI [Suspect]
     Indication: MULTIPLE SCLEROSIS
     Route: 042
     Dates: start: 20080101, end: 20110530
  2. CONTRACEPTIVE IMPLANT [Concomitant]
     Indication: CONTRACEPTION

REACTIONS (2)
  - GLOMERULONEPHRITIS CHRONIC [None]
  - ANAEMIA [None]
